FAERS Safety Report 7469559-4 (Version None)
Quarter: 2011Q2

REPORT INFORMATION
  Report Type: 
  Country: None (occurrence: None)
  Receive Date: 20110510
  Receipt Date: 20110504
  Transmission Date: 20111010
  Serious: Yes (Other)
  Sender: FDA-Public Use
  Company Number: PHHY2011US36372

PATIENT
  Sex: Male

DRUGS (4)
  1. VICODIN [Concomitant]
  2. PROLEUKIN [Suspect]
     Indication: RENAL CELL CARCINOMA
     Dosage: 45X10^6 IU
     Dates: start: 20110328, end: 20110402
  3. NASONEX [Concomitant]
  4. PROPECIA [Concomitant]

REACTIONS (3)
  - VISION BLURRED [None]
  - HYPOTENSION [None]
  - RETINAL HAEMORRHAGE [None]
